FAERS Safety Report 16319949 (Version 1)
Quarter: 2019Q2

REPORT INFORMATION
  Report Type: Report from Study
  Country: FR (occurrence: FR)
  Receive Date: 20190516
  Receipt Date: 20190516
  Transmission Date: 20190711
  Serious: Yes (Hospitalization)
  Sender: FDA-Public Use
  Company Number: FR-PFIZER INC-2019199535

PATIENT
  Age: 74 Year
  Sex: Male
  Weight: 70 kg

DRUGS (10)
  1. AFLIBERCEPT [Suspect]
     Active Substance: AFLIBERCEPT
     Indication: COLORECTAL CANCER METASTATIC
     Dosage: 260 MG, CYCLIC
     Route: 042
     Dates: start: 20150413, end: 20150413
  2. IRINOTECAN HCL [Suspect]
     Active Substance: IRINOTECAN HYDROCHLORIDE
     Indication: COLORECTAL CANCER METASTATIC
     Dosage: 260 MG, CYCLIC
     Route: 042
     Dates: start: 20150413, end: 20150413
  3. FLUOROURACIL. [Suspect]
     Active Substance: FLUOROURACIL
     Dosage: 3250 MG, CYCLIC
     Route: 042
     Dates: start: 20181002, end: 20181002
  4. FLUOROURACIL. [Suspect]
     Active Substance: FLUOROURACIL
     Indication: COLORECTAL CANCER METASTATIC
     Dosage: 700 MG, CYCLIC
     Route: 040
     Dates: start: 20150413, end: 20150413
  5. AFLIBERCEPT [Suspect]
     Active Substance: AFLIBERCEPT
     Dosage: 260 MG, CYCLIC
     Route: 042
     Dates: start: 20180918
  6. IRINOTECAN HCL [Suspect]
     Active Substance: IRINOTECAN HYDROCHLORIDE
     Dosage: 260 MG, CYCLIC
     Route: 042
     Dates: start: 20181002, end: 20181002
  7. FLUOROURACIL. [Suspect]
     Active Substance: FLUOROURACIL
     Dosage: 3250 MG, CYCLIC
     Route: 040
     Dates: start: 20150413, end: 20150413
  8. FLUOROURACIL. [Suspect]
     Active Substance: FLUOROURACIL
     Dosage: 700 MG, CYCLIC
     Route: 040
     Dates: start: 20160324, end: 20160324
  9. FOLINIC ACID [Suspect]
     Active Substance: LEUCOVORIN
     Indication: COLORECTAL CANCER METASTATIC
     Dosage: 700 MG, CYCLIC
     Route: 042
     Dates: start: 20150413, end: 20150413
  10. FOLINIC ACID [Suspect]
     Active Substance: LEUCOVORIN
     Dosage: 700 MG, CYCLIC
     Route: 042
     Dates: start: 20181002

REACTIONS (1)
  - Fall [Recovered/Resolved]

NARRATIVE: CASE EVENT DATE: 20181012
